FAERS Safety Report 19727393 (Version 1)
Quarter: 2021Q3

REPORT INFORMATION
  Report Type: Spontaneous
  Country: ES (occurrence: ES)
  Receive Date: 20210819
  Receipt Date: 20210819
  Transmission Date: 20211014
  Serious: Yes (Other)
  Sender: FDA-Public Use
  Company Number: NVSC2021ES181480

PATIENT
  Age: 43 Year
  Sex: Female
  Weight: 65 kg

DRUGS (2)
  1. CEFTRIAXONE. [Suspect]
     Active Substance: CEFTRIAXONE
     Indication: URETHRITIS
     Dosage: 1 G, Q24H
     Route: 030
     Dates: start: 20210729, end: 20210729
  2. AZITHROMYCIN ANHYDROUS. [Suspect]
     Active Substance: AZITHROMYCIN ANHYDROUS
     Indication: URETHRITIS
     Dosage: 1 G, QD
     Route: 048
     Dates: start: 20210729, end: 20210729

REACTIONS (1)
  - Angioedema [Recovered/Resolved]

NARRATIVE: CASE EVENT DATE: 20210729
